FAERS Safety Report 7085545-0 (Version None)
Quarter: 2010Q4

REPORT INFORMATION
  Report Type: 
  Country: None (occurrence: None)
  Receive Date: 20101105
  Receipt Date: 20101102
  Transmission Date: 20110411
  Serious: Yes (Hospitalization)
  Sender: FDA-Public Use
  Company Number: US-PFIZER INC-2010079638

PATIENT
  Sex: Female

DRUGS (1)
  1. SUTENT [Suspect]
     Indication: METASTATIC RENAL CELL CARCINOMA
     Dosage: 25 MG, 2X/DAY, X 28DAY EVERY 42 DAYS
     Route: 048
     Dates: start: 20100506, end: 20100601

REACTIONS (1)
  - MALAISE [None]
